FAERS Safety Report 24170446 (Version 1)
Quarter: 2024Q3

REPORT INFORMATION
  Report Type: Spontaneous
  Country: AZ (occurrence: AZ)
  Receive Date: 20240803
  Receipt Date: 20240803
  Transmission Date: 20241017
  Serious: Yes (Other)
  Sender: TEVA
  Company Number: AZ-TEVA-VS-3226997

PATIENT

DRUGS (1)
  1. CARBAMAZEPINE [Suspect]
     Active Substance: CARBAMAZEPINE
     Indication: Product used for unknown indication
     Dosage: PACKAGE: NO 50 IN BLISTER
     Route: 065

REACTIONS (8)
  - Urticaria chronic [Unknown]
  - Arthralgia [Unknown]
  - Fatigue [Unknown]
  - Asthenia [Unknown]
  - Swelling [Unknown]
  - Headache [Unknown]
  - Dizziness [Unknown]
  - Adverse event [Unknown]
